FAERS Safety Report 19250153 (Version 1)
Quarter: 2021Q2

REPORT INFORMATION
  Report Type: Other
  Country: US (occurrence: US)
  Receive Date: 20210513
  Receipt Date: 20210513
  Transmission Date: 20210717
  Serious: Yes (Death)
  Sender: FDA-Public Use
  Company Number: US-ROCHE-2824591

PATIENT
  Sex: Female
  Weight: 23.61 kg

DRUGS (2)
  1. EVRYSDI [Suspect]
     Active Substance: RISDIPLAM
     Indication: SPINAL MUSCULAR ATROPHY
     Dosage: ONGOING: NO. DIRECTIONS: 5 MG VIA PEG TUBE DAILY (1 MONTH SUPPLY)
     Route: 065
     Dates: start: 20200831
  2. QUERCETIN DIHYDRATE [Concomitant]

REACTIONS (1)
  - Death [Fatal]
